FAERS Safety Report 20280062 (Version 1)
Quarter: 2021Q4

REPORT INFORMATION
  Report Type: Spontaneous
  Country: US (occurrence: None)
  Receive Date: 20211231
  Receipt Date: 20211231
  Transmission Date: 20220303
  Serious: No
  Sender: FDA-Public Use
  Company Number: None

PATIENT
  Age: 17 Year
  Sex: Male
  Weight: 75.5 kg

DRUGS (1)
  1. BAMLANIVIMAB\ETESEVIMAB [Suspect]
     Active Substance: BAMLANIVIMAB\ETESEVIMAB
     Indication: COVID-19

REACTIONS (6)
  - Infusion related reaction [None]
  - Back pain [None]
  - Pain in jaw [None]
  - Body temperature decreased [None]
  - Heart rate increased [None]
  - Pulse pressure decreased [None]

NARRATIVE: CASE EVENT DATE: 20211231
